FAERS Safety Report 8505035-5 (Version None)
Quarter: 2012Q3

REPORT INFORMATION
  Report Type: 
  Country: None (occurrence: None)
  Receive Date: 20120712
  Receipt Date: 20120629
  Transmission Date: 20120928
  Serious: Yes (Hospitalization)
  Sender: FDA-Public Use
  Company Number: HK-BAYER-2012-068983

PATIENT
  Age: 71 Year
  Sex: Female

DRUGS (5)
  1. NIFEDIPINE [Concomitant]
     Dosage: UNK
     Dates: start: 20100407
  2. VALSARTAN [Concomitant]
     Dosage: UNK
     Dates: start: 20100407
  3. PLACEBO [Suspect]
     Indication: HEPATIC NEOPLASM MALIGNANT
     Dosage: UNK
     Route: 048
     Dates: start: 20100414
  4. SORAFENIB (RAF KINASE INHIBITOR) [Suspect]
     Indication: HEPATIC NEOPLASM MALIGNANT
     Dosage: 800 MG, QD
     Route: 048
     Dates: start: 20100414
  5. DOLOGESIC [PARACETAMOL,PHENYLTOLOXAMINE CITRATE] [Concomitant]
     Dosage: UNK
     Dates: start: 20100421

REACTIONS (2)
  - INAPPROPRIATE ANTIDIURETIC HORMONE SECRETION [None]
  - MALAISE [None]
